FAERS Safety Report 9240444 (Version 1)
Quarter: 2013Q2

REPORT INFORMATION
  Report Type: Spontaneous
  Country: CA (occurrence: None)
  Receive Date: 20130415
  Receipt Date: 20130415
  Transmission Date: 20140414
  Serious: Yes (Other)
  Sender: FDA-Public Use
  Company Number: 2013035336

PATIENT
  Age: 61 Year
  Sex: Male
  Weight: 70 kg

DRUGS (11)
  1. PRIVIGEN (IMMUNE GLOBULIN INTRAVENOUS (HUMAN) 10% LIQUID) [Suspect]
     Indication: GUILLAIN-BARRE SYNDROME
     Dosage: INTRAVENOUS (NOT OTHERWISE SPECIFIED)?
     Route: 042
     Dates: start: 20130308, end: 20130311
  2. FERROUS SULFATE (FERROUS SULFATE) [Concomitant]
  3. DALTEPARIN SODIUM (DALTEPARIN SODIUM) UNKNOWN [Concomitant]
  4. ROSUVASTATIN CALCIUM (ROSUVASTATIN CALCIUM) [Concomitant]
  5. PIOGLITAZONE (PIOGLITAZONE) [Concomitant]
  6. DOCUSATE SODIUM (DOCUSATE SODIUM) [Concomitant]
  7. DIMENHYDRINATE (DIMENHYDRINATE) [Concomitant]
  8. ACETAMINOPHEN (PARACETAMOL) [Concomitant]
  9. SENNA GLYCOSIDES (SENNA ALEXANDRINA EXTRACT) [Concomitant]
  10. HYDROMORPHONE IMMEDI (HYDROMORPHONE) [Concomitant]
  11. LANSOPRAZOLE (DELAYED) (LANSOPRAZOLE) [Concomitant]

REACTIONS (2)
  - Delayed haemolytic transfusion reaction [None]
  - Haemoglobin decreased [None]
